FAERS Safety Report 15491760 (Version 2)
Quarter: 2018Q4

REPORT INFORMATION
  Report Type: Spontaneous
  Country: FR (occurrence: FR)
  Receive Date: 20181012
  Receipt Date: 20181031
  Transmission Date: 20190205
  Serious: Yes (Hospitalization, Other)
  Sender: FDA-Public Use
  Company Number: FR-AUROBINDO-AUR-APL-2018-049921

PATIENT
  Age: 74 Year
  Sex: Male
  Weight: 73 kg

DRUGS (13)
  1. NAFTIDROFURYL [Suspect]
     Active Substance: NAFRONYL
     Dosage: 600 UNK
     Route: 065
     Dates: end: 20180817
  2. MODURETIC 5-50 [Suspect]
     Active Substance: AMILORIDE HYDROCHLORIDE\HYDROCHLOROTHIAZIDE
     Indication: HYPERTENSION
     Dosage: 2 DOSAGE FORM, ONCE A DAY
     Route: 048
     Dates: end: 20180817
  3. XELEVIA [Suspect]
     Active Substance: SITAGLIPTIN PHOSPHATE
     Indication: TYPE 2 DIABETES MELLITUS
     Dosage: 100 MILLIGRAMS
     Route: 048
     Dates: end: 20180817
  4. ADENURIC [Suspect]
     Active Substance: FEBUXOSTAT
     Indication: HYPERURICAEMIA
     Dosage: 80 MILLIGRAMS
     Route: 048
     Dates: end: 20180817
  5. SIMVASTATINE [Concomitant]
     Active Substance: SIMVASTATIN
     Indication: HYPERCHOLESTEROLAEMIA
     Dosage: UNK
     Route: 065
  6. CLOPIDOGREL [Concomitant]
     Active Substance: CLOPIDOGREL BISULFATE
     Indication: PRODUCT USED FOR UNKNOWN INDICATION
     Dosage: UNK
     Route: 065
  7. PANTOPRAZOLE [Concomitant]
     Active Substance: PANTOPRAZOLE
     Indication: GASTROOESOPHAGEAL REFLUX DISEASE
     Dosage: UNK
     Route: 065
  8. GLIBENCLAMIDE [Suspect]
     Active Substance: GLYBURIDE
     Indication: TYPE 2 DIABETES MELLITUS
     Dosage: 5 MILLIGRAMS
     Route: 048
     Dates: end: 20180817
  9. NAFTIDROFURYL [Suspect]
     Active Substance: NAFRONYL
     Indication: INTERMITTENT CLAUDICATION
     Dosage: 200 MILLIGRAMS
     Route: 048
     Dates: end: 20180817
  10. METFORMIN [Suspect]
     Active Substance: METFORMIN HYDROCHLORIDE
     Indication: TYPE 2 DIABETES MELLITUS
     Dosage: 3000 MILLIGRAM, ONCE A DAY
     Route: 048
     Dates: start: 2007, end: 20180817
  11. METFORMIN [Suspect]
     Active Substance: METFORMIN HYDROCHLORIDE
     Dosage: 100 MILLIGRAM, ONCE A DAY
     Route: 048
     Dates: start: 2007, end: 20180817
  12. VALSARTAN FILM-COATED TABLET [Suspect]
     Active Substance: VALSARTAN
     Indication: HYPERTENSION
     Dosage: 80 MILLIGRAM, ONCE A DAY
     Route: 048
     Dates: end: 20180817
  13. GLIBENCLAMIDE [Suspect]
     Active Substance: GLYBURIDE
     Dosage: 15 MILLIEQUIVALENT
     Route: 065
     Dates: end: 20180817

REACTIONS (4)
  - Hypomagnesaemia [Recovered/Resolved]
  - Lactic acidosis [Recovered/Resolved]
  - Hypocalcaemia [Recovered/Resolved]
  - Acute kidney injury [Recovered/Resolved]

NARRATIVE: CASE EVENT DATE: 20180817
